FAERS Safety Report 24248872 (Version 1)
Quarter: 2024Q3

REPORT INFORMATION
  Report Type: Spontaneous
  Country: CZ (occurrence: CZ)
  Receive Date: 20240826
  Receipt Date: 20240826
  Transmission Date: 20241017
  Serious: Yes (Life-Threatening, Hospitalization, Other)
  Sender: MYLAN
  Company Number: CZ-002147023-PHHY2019CZ228218

PATIENT
  Age: 53 Year
  Sex: Male

DRUGS (6)
  1. VALGANCICLOVIR [Suspect]
     Active Substance: VALGANCICLOVIR
     Indication: Cytomegalovirus infection reactivation
     Dosage: UNK
     Route: 065
  2. CYCLOSPORINE [Suspect]
     Active Substance: CYCLOSPORINE
     Indication: Product used for unknown indication
     Dosage: UNK
     Route: 065
  3. FOSCAVIR [Suspect]
     Active Substance: FOSCARNET SODIUM
     Indication: Cytomegalovirus infection reactivation
     Dosage: UNK
     Route: 065
  4. FOSCAVIR [Suspect]
     Active Substance: FOSCARNET SODIUM
     Indication: Cytomegalovirus infection
  5. CIDOFOVIR [Suspect]
     Active Substance: CIDOFOVIR
     Indication: Cytomegalovirus infection reactivation
     Dosage: UNK
     Route: 065
  6. GANCICLOVIR [Concomitant]
     Active Substance: GANCICLOVIR
     Indication: Product used for unknown indication
     Dosage: UNK
     Route: 065

REACTIONS (7)
  - Renal failure [Not Recovered/Not Resolved]
  - Cytomegalovirus infection [Unknown]
  - Cytomegalovirus colitis [Recovered/Resolved]
  - Pneumonia cytomegaloviral [Recovered/Resolved]
  - Pneumonitis [Unknown]
  - Off label use [Unknown]
  - Drug resistance [Unknown]
